FAERS Safety Report 10261955 (Version 1)
Quarter: 2014Q2

REPORT INFORMATION
  Report Type: Spontaneous
  Country: SG (occurrence: SG)
  Receive Date: 20140626
  Receipt Date: 20140626
  Transmission Date: 20141212
  Serious: Yes (Hospitalization, Disabling, Other)
  Sender: FDA-Public Use
  Company Number: SG-WATSON-2014-14273

PATIENT
  Age: 70 Year
  Sex: Female

DRUGS (1)
  1. TICLOPIDINE (UNKNOWN) [Suspect]
     Indication: PRODUCT USED FOR UNKNOWN INDICATION
     Dosage: UNKNOWN
     Route: 065

REACTIONS (1)
  - Spinal epidural haematoma [Recovered/Resolved with Sequelae]
